FAERS Safety Report 7528551-1 (Version None)
Quarter: 2011Q2

REPORT INFORMATION
  Report Type: 
  Country: None (occurrence: None)
  Receive Date: 20110607
  Receipt Date: 20110214
  Transmission Date: 20111010
  Serious: No
  Sender: FDA-Public Use
  Company Number: US-ASTRAZENECA-2010SE57217

PATIENT
  Sex: Female

DRUGS (2)
  1. NOT SPECIFIED [Concomitant]
  2. PRILOSEC OTC [Suspect]
     Route: 048

REACTIONS (4)
  - GASTRIC DISORDER [None]
  - ABDOMINAL PAIN UPPER [None]
  - PRODUCT TASTE ABNORMAL [None]
  - INCORRECT DOSE ADMINISTERED [None]
